FAERS Safety Report 10014605 (Version 2)
Quarter: 2014Q1

REPORT INFORMATION
  Report Type: Spontaneous
  Country: US (occurrence: US)
  Receive Date: 20140317
  Receipt Date: 20140317
  Transmission Date: 20141002
  Serious: Yes (Death)
  Sender: FDA-Public Use
  Company Number: US-GE HEALTHCARE MEDICAL DIAGNOSTICS-OSCN-PR-0710S-0418

PATIENT
  Age: 42 Year
  Sex: Male

DRUGS (6)
  1. OMNISCAN [Suspect]
     Indication: PRODUCT USED FOR UNKNOWN INDICATION
     Route: 042
     Dates: start: 20031201, end: 20031201
  2. MAGNEVIST [Suspect]
     Indication: PRODUCT USED FOR UNKNOWN INDICATION
     Route: 042
     Dates: start: 20021220, end: 20021220
  3. MAGNEVIST [Suspect]
     Route: 042
     Dates: start: 20030513, end: 20030513
  4. OPTIMARK [Suspect]
     Indication: PRODUCT USED FOR UNKNOWN INDICATION
     Route: 042
     Dates: start: 20040126, end: 20040126
  5. OPTIMARK [Suspect]
     Route: 042
     Dates: start: 20041213, end: 20041213
  6. OPTIMARK [Suspect]
     Route: 042
     Dates: start: 20040820, end: 20040820

REACTIONS (1)
  - Nephrogenic systemic fibrosis [Fatal]
